FAERS Safety Report 18235602 (Version 2)
Quarter: 2021Q2

REPORT INFORMATION
  Report Type: Spontaneous
  Country: JP (occurrence: JP)
  Receive Date: 20200905
  Receipt Date: 20210618
  Transmission Date: 20210717
  Serious: Yes (Other)
  Sender: FDA-Public Use
  Company Number: JP-SUN PHARMACEUTICAL INDUSTRIES LTD-2020RR-253803

PATIENT
  Age: 9 Decade
  Sex: Male

DRUGS (4)
  1. 5?FLUOROURACIL [Suspect]
     Active Substance: FLUOROURACIL
     Indication: METASTASES TO PERITONEUM
     Dosage: 400 MILLIGRAM/SQ. METER STANDARD DOSE, MFOLFOX6 + BV REGIMEN, 2,400 MG/M2 46 HOURS CONTINUOUS INJECT
     Route: 042
  2. OXALIPLATIN. [Suspect]
     Active Substance: OXALIPLATIN
     Indication: METASTASES TO PERITONEUM
     Dosage: 85 MILLIGRAM/SQ. METER STANDARD DOSE, MFOLFOX6 + BV REGIMEN, 2,400 MG/M2 46 HOURS CONTINUOUS INJECTI
     Route: 042
  3. BEVACIZUMAB. [Suspect]
     Active Substance: BEVACIZUMAB
     Indication: METASTASES TO PERITONEUM
     Dosage: 5 MILLIGRAM/KILOGRAM STANDARD DOSE, MFOLFOX6 + BV REGIMEN, 2,400 MG/M2 46 HOURS CONTINUOUS INJECTION
     Route: 042
  4. CALCIUM FOLINAT [Suspect]
     Active Substance: LEUCOVORIN CALCIUM
     Indication: METASTASES TO PERITONEUM
     Dosage: 200 MILLIGRAM/SQ. METER STANDARD DOSE, MFOLFOX6 + BV REGIMEN, 2,400 MG/M2 46 HOURS CONTINUOUS INJECT
     Route: 042

REACTIONS (1)
  - Drug hypersensitivity [Unknown]
